FAERS Safety Report 17344317 (Version 1)
Quarter: 2020Q1

REPORT INFORMATION
  Report Type: Spontaneous
  Country: US (occurrence: US)
  Receive Date: 20200129
  Receipt Date: 20200129
  Transmission Date: 20200409
  Serious: No
  Sender: FDA-Public Use
  Company Number: US-ALLERGAN-1929841US

PATIENT
  Age: 26 Year
  Sex: Female

DRUGS (3)
  1. EYE CREAM (UNSPECIFIED) [Concomitant]
     Dosage: UNK
     Dates: start: 20190718
  2. MASCARA [Concomitant]
     Dosage: UNK
  3. BOTOX COSMETIC [Suspect]
     Active Substance: ONABOTULINUMTOXINA
     Indication: SKIN WRINKLING
     Dosage: UNK, SINGLE
     Dates: start: 20190718, end: 20190718

REACTIONS (1)
  - Eye swelling [Recovering/Resolving]

NARRATIVE: CASE EVENT DATE: 20190719
